FAERS Safety Report 7525962-5 (Version None)
Quarter: 2011Q2

REPORT INFORMATION
  Report Type: 
  Country: None (occurrence: None)
  Receive Date: 20110606
  Receipt Date: 20110531
  Transmission Date: 20111010
  Serious: Yes (Life-Threatening)
  Sender: FDA-Public Use
  Company Number: FR-ASTRAZENECA-2011SE16666

PATIENT
  Sex: Female

DRUGS (5)
  1. LOVENOX [Suspect]
     Indication: ANTICOAGULANT THERAPY
     Route: 058
     Dates: start: 20110210, end: 20110223
  2. TRACRIUM [Suspect]
     Indication: ENDOTRACHEAL INTUBATION
     Route: 042
     Dates: start: 20110210, end: 20110224
  3. NEXIUM [Suspect]
     Indication: GASTROOESOPHAGEAL REFLUX DISEASE
     Route: 042
     Dates: start: 20110210, end: 20110224
  4. CELOCURINE [Suspect]
     Indication: ANAESTHESIA
     Route: 042
     Dates: start: 20110210, end: 20110210
  5. PROPOFOL [Suspect]
     Indication: PAIN
     Route: 042
     Dates: start: 20110210, end: 20110225

REACTIONS (5)
  - RASH VESICULAR [None]
  - HEPATIC ENZYME INCREASED [None]
  - BRONCHOSPASM [None]
  - RHABDOMYOLYSIS [None]
  - RENAL FAILURE [None]
